FAERS Safety Report 5868027-0 (Version None)
Quarter: 2008Q3

REPORT INFORMATION
  Report Type: 
  Country: None (occurrence: None)
  Receive Date: 20080902
  Receipt Date: 20080317
  Transmission Date: 20090109
  Serious: No
  Sender: FDA-Public Use
  Company Number: US-ABBOTT-08P-163-0443165-00

PATIENT
  Sex: Male
  Weight: 100 kg

DRUGS (7)
  1. DEPAKOTE ER [Suspect]
     Indication: MIGRAINE
     Route: 048
     Dates: start: 20060101
  2. NEURTOIN [Concomitant]
     Indication: FACIAL PAIN
     Dates: start: 20060101
  3. ASAFEX [Concomitant]
     Indication: DRUG USE FOR UNKNOWN INDICATION
  4. FIBER PILL [Concomitant]
     Indication: MEDICAL DIET
  5. VITAMIN E [Concomitant]
     Indication: VITAMIN SUPPLEMENTATION
  6. GARLIC TABLET [Concomitant]
     Indication: MEDICAL DIET
  7. FISH OIL TABLET [Concomitant]
     Indication: MEDICAL DIET

REACTIONS (1)
  - MEDICATION RESIDUE [None]
